FAERS Safety Report 9783170 (Version 1)
Quarter: 2013Q4

REPORT INFORMATION
  Report Type: Spontaneous
  Country: US (occurrence: None)
  Receive Date: 20131223
  Receipt Date: 20131223
  Transmission Date: 20140711
  Serious: Yes (Other)
  Sender: FDA-Public Use
  Company Number: EUS-2012-00011

PATIENT
  Age: 16 Year
  Sex: Male

DRUGS (6)
  1. ERWINASE (ASPARAGINASE) [Suspect]
     Indication: ACUTE LYMPHOCYTIC LEUKAEMIA
     Dosage: (34000 IU), INTRAMUSCULAR
     Dates: start: 20110908, end: 20111118
  2. LOVENOX (ENOXAMPARIN SODIUM) [Concomitant]
  3. OMERPRAZOLE (OMEPRAZOLE) (OMEPRAZOLE) [Concomitant]
  4. VINCRISTINE (VINCRISTINE) [Concomitant]
  5. METHOTREXATE (METHOTREXATE) [Concomitant]
  6. TUMS (CALCIUM CARBONATE) (CALCIUM CARBONATE) [Concomitant]

REACTIONS (2)
  - Hypersensitivity [None]
  - Convulsion [None]
